FAERS Safety Report 4511787-1 (Version None)
Quarter: 2004Q4

REPORT INFORMATION
  Report Type: 
  Country: None (occurrence: None)
  Receive Date: 20041123
  Receipt Date: 20041123
  Transmission Date: 20050328
  Serious: Yes (Other)
  Sender: FDA-Public Use
  Company Number: None

PATIENT
  Age: 62 Year
  Sex: Male
  Weight: 133.8 kg

DRUGS (7)
  1. NAPROXEN [Suspect]
  2. ALLOPURINOL [Concomitant]
  3. TERAZOSIN HCL [Concomitant]
  4. NAPROXEN [Concomitant]
  5. FOSINOPRIL NA [Concomitant]
  6. LIDOCAINE 5% [Concomitant]
  7. LORATADINE [Concomitant]

REACTIONS (1)
  - URTICARIA [None]
